FAERS Safety Report 7561809-9 (Version None)
Quarter: 2011Q2

REPORT INFORMATION
  Report Type: 
  Country: None (occurrence: None)
  Receive Date: 20110621
  Receipt Date: 20110616
  Transmission Date: 20111010
  Serious: Yes (Death, Other)
  Sender: FDA-Public Use
  Company Number: FR-PFIZER INC-2011133045

PATIENT
  Age: 42 Year
  Sex: Male

DRUGS (3)
  1. ZYVOX [Suspect]
     Indication: PNEUMONIA
     Dosage: UNK
  2. GENTAMYCIN SULFATE [Concomitant]
  3. ROCEPHIN [Concomitant]

REACTIONS (4)
  - WEIGHT DECREASED [None]
  - DEATH [None]
  - SEPTIC SHOCK [None]
  - ACUTE RESPIRATORY DISTRESS SYNDROME [None]
